FAERS Safety Report 21382663 (Version 17)
Quarter: 2023Q4

REPORT INFORMATION
  Report Type: Report from Study
  Country: TW (occurrence: None)
  Receive Date: 20220927
  Receipt Date: 20231208
  Transmission Date: 20240109
  Serious: Yes (Hospitalization)
  Sender: FDA-Public Use
  Company Number: TW-ROCHE-3181244

PATIENT
  Age: 51 Year
  Sex: Male
  Weight: 55.1 kg

DRUGS (39)
  1. SATRALIZUMAB [Suspect]
     Active Substance: SATRALIZUMAB
     Indication: Neuromyelitis optica spectrum disorder
     Dosage: ON 15/AUG/2022 TO 12/SEP/2022 11:42 AM, MOST RECENT DOSE OF STUDY DRUG PRIOR TO AE/SAE
     Route: 058
     Dates: start: 20210621
  2. RIVOTRIL [Concomitant]
     Active Substance: CLONAZEPAM
     Indication: Neuromyelitis optica spectrum disorder
     Route: 048
     Dates: start: 20220913, end: 20220916
  3. RIVOTRIL [Concomitant]
     Active Substance: CLONAZEPAM
     Indication: Pain
     Route: 048
     Dates: start: 20220917, end: 20221106
  4. RIVOTRIL [Concomitant]
     Active Substance: CLONAZEPAM
     Route: 048
     Dates: end: 20220913
  5. RIVOTRIL [Concomitant]
     Active Substance: CLONAZEPAM
     Route: 048
     Dates: start: 20221107
  6. PREGABALIN [Concomitant]
     Active Substance: PREGABALIN
     Indication: Neuromyelitis optica spectrum disorder
     Route: 048
  7. PREGABALIN [Concomitant]
     Active Substance: PREGABALIN
     Indication: Pain
  8. METHYLCOBALAMIN [Concomitant]
     Active Substance: METHYLCOBALAMIN
     Indication: Neuromyelitis optica spectrum disorder
     Route: 048
     Dates: start: 20180918
  9. METHYLCOBALAMIN [Concomitant]
     Active Substance: METHYLCOBALAMIN
     Indication: Pain
  10. OXCARBAZEPINE [Concomitant]
     Active Substance: OXCARBAZEPINE
     Indication: Neuromyelitis optica spectrum disorder
     Route: 048
     Dates: start: 20210324, end: 20220916
  11. OXCARBAZEPINE [Concomitant]
     Active Substance: OXCARBAZEPINE
     Indication: Pain
     Route: 048
     Dates: start: 20220917, end: 20221106
  12. OXCARBAZEPINE [Concomitant]
     Active Substance: OXCARBAZEPINE
     Route: 048
     Dates: start: 20221107
  13. TRAMADOL [Concomitant]
     Active Substance: TRAMADOL\TRAMADOL HYDROCHLORIDE
     Indication: Neuromyelitis optica spectrum disorder
     Route: 048
     Dates: start: 20210324, end: 20220913
  14. TRAMADOL [Concomitant]
     Active Substance: TRAMADOL\TRAMADOL HYDROCHLORIDE
     Indication: Pain
     Route: 048
     Dates: start: 20220913
  15. TRAMADOL [Concomitant]
     Active Substance: TRAMADOL\TRAMADOL HYDROCHLORIDE
     Route: 048
     Dates: start: 20220917, end: 20221106
  16. TRAMADOL [Concomitant]
     Active Substance: TRAMADOL\TRAMADOL HYDROCHLORIDE
     Route: 048
     Dates: start: 20221107
  17. ACETAMINOPHEN [Concomitant]
     Active Substance: ACETAMINOPHEN
     Indication: Neuromyelitis optica spectrum disorder
     Route: 048
     Dates: start: 20210324, end: 20220913
  18. ACETAMINOPHEN [Concomitant]
     Active Substance: ACETAMINOPHEN
     Indication: Pain
     Route: 048
     Dates: start: 20220913, end: 20220916
  19. ACETAMINOPHEN [Concomitant]
     Active Substance: ACETAMINOPHEN
     Route: 048
     Dates: start: 20220917, end: 20221106
  20. ACETAMINOPHEN [Concomitant]
     Active Substance: ACETAMINOPHEN
     Route: 048
     Dates: start: 20230406, end: 20231205
  21. ACETAMINOPHEN [Concomitant]
     Active Substance: ACETAMINOPHEN
     Route: 048
     Dates: start: 20221107
  22. PIRENOXINE [Concomitant]
     Active Substance: PIRENOXINE
     Indication: Neuromyelitis optica spectrum disorder
     Route: 047
  23. PIRENOXINE [Concomitant]
     Active Substance: PIRENOXINE
     Indication: Pain
  24. BRINZOLAMIDE [Concomitant]
     Active Substance: BRINZOLAMIDE
     Indication: Neuromyelitis optica spectrum disorder
     Route: 047
  25. BRINZOLAMIDE [Concomitant]
     Active Substance: BRINZOLAMIDE
     Indication: Pain
  26. BRIMONIDINE TARTRATE [Concomitant]
     Active Substance: BRIMONIDINE TARTRATE
     Indication: Neuromyelitis optica spectrum disorder
     Route: 047
  27. BRIMONIDINE TARTRATE [Concomitant]
     Active Substance: BRIMONIDINE TARTRATE
     Indication: Pain
  28. ETHAMBUTOL [Concomitant]
     Active Substance: ETHAMBUTOL HYDROCHLORIDE
     Indication: Neuromyelitis optica spectrum disorder
     Route: 048
     Dates: start: 20221017, end: 20221114
  29. RIFAMPIN [Concomitant]
     Active Substance: RIFAMPIN
     Indication: Neuromyelitis optica spectrum disorder
     Route: 048
     Dates: start: 20221017, end: 20221114
  30. ISONIAZID [Concomitant]
     Active Substance: ISONIAZID
     Indication: Neuromyelitis optica spectrum disorder
     Route: 003
     Dates: start: 20221017, end: 20221114
  31. ISONIAZID [Concomitant]
     Active Substance: ISONIAZID
     Route: 048
     Dates: start: 20230321, end: 20230510
  32. MOSAPRIDE [Concomitant]
     Active Substance: MOSAPRIDE
     Indication: Abdominal discomfort
     Route: 048
     Dates: start: 20221115, end: 20221121
  33. CLARITHROMYCIN [Concomitant]
     Active Substance: CLARITHROMYCIN
     Route: 048
     Dates: start: 20221115, end: 20221212
  34. RIFABUTIN [Concomitant]
     Active Substance: RIFABUTIN
     Route: 048
     Dates: start: 20221115, end: 20230207
  35. AZITHROMYCIN [Concomitant]
     Active Substance: AZITHROMYCIN
     Route: 048
     Dates: start: 20221213, end: 20230207
  36. AZITHROMYCIN [Concomitant]
     Active Substance: AZITHROMYCIN
     Route: 048
     Dates: start: 20230221, end: 20230320
  37. MONTMORILLONITE [Concomitant]
     Active Substance: MONTMORILLONITE
     Indication: Diarrhoea
     Route: 048
     Dates: start: 20221213, end: 20230306
  38. PYRIDOXINE [Concomitant]
     Active Substance: PYRIDOXINE
     Route: 048
     Dates: start: 20221213, end: 20231205
  39. DICLOFENAC [Concomitant]
     Active Substance: DICLOFENAC
     Indication: Pyrexia
     Route: 048
     Dates: start: 20230829, end: 20231205

REACTIONS (2)
  - Atypical mycobacterial infection [Recovered/Resolved]
  - Intervertebral disc protrusion [Recovering/Resolving]

NARRATIVE: CASE EVENT DATE: 20220908
